FAERS Safety Report 7815672-9 (Version None)
Quarter: 2011Q4

REPORT INFORMATION
  Report Type: 
  Country: None (occurrence: None)
  Receive Date: 20111014
  Receipt Date: 20111012
  Transmission Date: 20120403
  Serious: Yes (Hospitalization, Other)
  Sender: FDA-Public Use
  Company Number: US-BAYER-2011-098667

PATIENT
  Sex: Female

DRUGS (2)
  1. BETASERON [Suspect]
     Dosage: UNK
     Dates: start: 19930101
  2. BACLOFEN [Concomitant]
     Indication: PAIN

REACTIONS (5)
  - CONVULSION [None]
  - ABASIA [None]
  - MUSCLE TIGHTNESS [None]
  - PAIN [None]
  - TREMOR [None]
